FAERS Safety Report 4356107-0 (Version None)
Quarter: 2004Q2

REPORT INFORMATION
  Report Type: 
  Country: None (occurrence: None)
  Receive Date: 20040511
  Receipt Date: 20040407
  Transmission Date: 20050107
  Serious: Yes (Other)
  Sender: FDA-Public Use
  Company Number: IE-GLAXOSMITHKLINE-B0329472A

PATIENT
  Age: 33 Year
  Sex: Female
  Weight: 60 kg

DRUGS (2)
  1. AUGMENTIN '125' [Suspect]
     Indication: TONSILLITIS
     Dosage: 625MG TWICE PER DAY
     Route: 048
     Dates: start: 20040329, end: 20040403
  2. NORETHINDRONE ACETATE AND ETHINYL ESTRADIOL [Concomitant]
     Indication: ORAL CONTRACEPTION
     Dosage: 1TAB PER DAY
     Route: 048
     Dates: start: 19991101

REACTIONS (4)
  - CONVULSION [None]
  - DIZZINESS [None]
  - LOSS OF CONSCIOUSNESS [None]
  - NERVOUSNESS [None]
